FAERS Safety Report 5265064-4 (Version None)
Quarter: 2007Q1

REPORT INFORMATION
  Report Type: 
  Country: None (occurrence: None)
  Receive Date: 20061122
  Receipt Date: 20060828
  Transmission Date: 20070707
  Serious: Yes (Hospitalization)
  Sender: FDA-Public Use
  Company Number: 2006MP001001

PATIENT
  Age: 69 Year
  Sex: Male
  Weight: 84.5 kg

DRUGS (8)
  1. GLIADEL [Suspect]
     Indication: GLIOBLASTOMA MULTIFORME
     Dosage: 1X; ICER
     Dates: start: 20060719
  2. 06-BENZYLGUANINE [Suspect]
     Indication: GLIOBLASTOMA MULTIFORME
     Dosage: SEE IMAGE
     Route: 042
     Dates: start: 20060719, end: 20060723
  3. CARBATROL [Concomitant]
  4. ZANTAC [Concomitant]
  5. HYDROCHLOROTHIAZIDE [Concomitant]
  6. SODIUM CHLORIDE [Concomitant]
  7. DECADRON [Concomitant]
  8. DEPAKOTE [Concomitant]

REACTIONS (3)
  - HYPONATRAEMIA [None]
  - MENTAL STATUS CHANGES [None]
  - PYREXIA [None]
